FAERS Safety Report 13329632 (Version 1)
Quarter: 2017Q1

REPORT INFORMATION
  Report Type: Spontaneous
  Country: AU (occurrence: AU)
  Receive Date: 20170313
  Receipt Date: 20170313
  Transmission Date: 20170428
  Serious: Yes (Hospitalization, Other)
  Sender: FDA-Public Use
  Company Number: AU-LANNETT COMPANY, INC.-AU-2017LAN000628

PATIENT
  Age: 68 Year
  Sex: Female

DRUGS (5)
  1. OXYCODONE HYDROCHLORIDE. [Suspect]
     Active Substance: OXYCODONE HYDROCHLORIDE
     Dosage: 5 MG, QID
  2. NALOXONE HCL W/OXYCODONE HCL [Suspect]
     Active Substance: NALOXONE HYDROCHLORIDE\OXYCODONE HYDROCHLORIDE
     Indication: BONE PAIN
     Dosage: 60/30 MG, TID
  3. OXYCODONE HYDROCHLORIDE. [Suspect]
     Active Substance: OXYCODONE HYDROCHLORIDE
     Dosage: UNK
  4. NALOXONE HCL W/OXYCODONE HCL [Suspect]
     Active Substance: NALOXONE HYDROCHLORIDE\OXYCODONE HYDROCHLORIDE
     Dosage: UNK
  5. OXYCODONE HYDROCHLORIDE. [Suspect]
     Active Substance: OXYCODONE HYDROCHLORIDE
     Indication: BONE PAIN
     Dosage: 60 MG, TID

REACTIONS (5)
  - Hepatic function abnormal [Unknown]
  - Depressed level of consciousness [Unknown]
  - Miosis [Unknown]
  - Toxicity to various agents [Unknown]
  - Respiratory rate decreased [Unknown]
